FAERS Safety Report 15819577 (Version 3)
Quarter: 2019Q2

REPORT INFORMATION
  Report Type: Spontaneous
  Country: US (occurrence: US)
  Receive Date: 20190114
  Receipt Date: 20190419
  Transmission Date: 20190711
  Serious: Yes (Death, Hospitalization)
  Sender: FDA-Public Use
  Company Number: US-TAKEDA-2019MPI000374

PATIENT
  Age: 69 Year
  Sex: Male

DRUGS (43)
  1. DEXAMETHASON                       /00016001/ [Suspect]
     Active Substance: DEXAMETHASONE
     Indication: PRODUCT USED FOR UNKNOWN INDICATION
     Dosage: UNK
     Route: 065
  2. DARZALEX [Concomitant]
     Active Substance: DARATUMUMAB
     Dosage: UNK
  3. ESCITALOPRAM [Concomitant]
     Active Substance: ESCITALOPRAM OXALATE
     Dosage: 5 MG, UNK
     Dates: start: 20180716
  4. INSULIN [Concomitant]
     Active Substance: INSULIN NOS
     Dosage: 0.5 G, UNK
     Dates: start: 20180726
  5. DILTIZEM [Concomitant]
     Dosage: 240 MG, UNK
     Dates: start: 20180825
  6. TERAZOSIN [Concomitant]
     Active Substance: TERAZOSIN\TERAZOSIN HYDROCHLORIDE
  7. POMALYST [Suspect]
     Active Substance: POMALIDOMIDE
     Indication: PRODUCT USED FOR UNKNOWN INDICATION
     Dosage: UNK
     Route: 065
  8. BISACODYL. [Concomitant]
     Active Substance: BISACODYL
  9. CALCITRIOL. [Concomitant]
     Active Substance: CALCITRIOL
  10. ALPRAZOLAM. [Concomitant]
     Active Substance: ALPRAZOLAM
  11. DOXYCYCLINE                        /00055702/ [Concomitant]
     Active Substance: DOXYCYCLINE
  12. ALPRAZOLAM. [Concomitant]
     Active Substance: ALPRAZOLAM
  13. PARICALCITOL. [Concomitant]
     Active Substance: PARICALCITOL
  14. NINLARO [Suspect]
     Active Substance: IXAZOMIB CITRATE
     Dosage: 4 MILLIGRAM
     Route: 048
     Dates: start: 20181010
  15. PROCHLORPERAZ [Concomitant]
     Active Substance: PROCHLORPERAZINE MALEATE
  16. HUMALOG [Concomitant]
     Active Substance: INSULIN LISPRO
  17. DUTASTERIDE. [Concomitant]
     Active Substance: DUTASTERIDE
     Dosage: 0.5 MG, UNK
     Dates: start: 20180125
  18. BUMETANIDE. [Concomitant]
     Active Substance: BUMETANIDE
     Dosage: 2 MG, UNK
     Dates: start: 20180815
  19. PULMOZYME [Concomitant]
     Active Substance: DORNASE ALFA
  20. HYDRALAZINE [Concomitant]
     Active Substance: HYDRALAZINE HYDROCHLORIDE
  21. ELIQUIS [Concomitant]
     Active Substance: APIXABAN
  22. SPIRIVA [Concomitant]
     Active Substance: TIOTROPIUM BROMIDE MONOHYDRATE
  23. APAP [Concomitant]
     Active Substance: ACETAMINOPHEN
  24. ATROPINE. [Concomitant]
     Active Substance: ATROPINE
  25. LEVEMIR [Concomitant]
     Active Substance: INSULIN DETEMIR
  26. CLINDAMYCIN. [Concomitant]
     Active Substance: CLINDAMYCIN
     Dosage: UNK
  27. NINLARO [Suspect]
     Active Substance: IXAZOMIB CITRATE
     Indication: PLASMA CELL MYELOMA
     Dosage: 3 MILLIGRAM, 1/WEEK
     Route: 048
  28. REVLIMID [Concomitant]
     Active Substance: LENALIDOMIDE
  29. TIROSINT [Concomitant]
     Active Substance: LEVOTHYROXINE SODIUM
     Dosage: 75 UG, UNK
     Dates: start: 20180727
  30. ZOFRAN [Concomitant]
     Active Substance: ONDANSETRON HYDROCHLORIDE
  31. TAMSULOSIN [Concomitant]
     Active Substance: TAMSULOSIN
  32. NITROFURANTIN [Concomitant]
     Active Substance: NITROFURANTOIN
     Dosage: UNK
  33. GATIFLOXACIN. [Concomitant]
     Active Substance: GATIFLOXACIN
  34. SEVELAMER [Concomitant]
     Active Substance: SEVELAMER
  35. FINASTERIDE. [Concomitant]
     Active Substance: FINASTERIDE
  36. KETOROLAC [Concomitant]
     Active Substance: KETOROLAC\KETOROLAC TROMETHAMINE
  37. OXYCODONE [Concomitant]
     Active Substance: OXYCODONE
  38. NARCAN [Concomitant]
     Active Substance: NALOXONE HYDROCHLORIDE
  39. DEMEROL [Concomitant]
     Active Substance: MEPERIDINE HYDROCHLORIDE
  40. CIPROFLOXACIN. [Concomitant]
     Active Substance: CIPROFLOXACIN
  41. HYDROMORPHONE [Concomitant]
     Active Substance: HYDROMORPHONE
  42. PREDNISONE. [Concomitant]
     Active Substance: PREDNISONE
  43. ONDANSETRON [Concomitant]
     Active Substance: ONDANSETRON

REACTIONS (5)
  - Upper limb fracture [Not Recovered/Not Resolved]
  - Off label use [Unknown]
  - Fatigue [Unknown]
  - Constipation [Unknown]
  - Ill-defined disorder [Fatal]

NARRATIVE: CASE EVENT DATE: 201808
